FAERS Safety Report 16573386 (Version 1)
Quarter: 2019Q3

REPORT INFORMATION
  Report Type: Spontaneous
  Country: US (occurrence: US)
  Receive Date: 20190715
  Receipt Date: 20190715
  Transmission Date: 20191004
  Serious: No
  Sender: FDA-Public Use
  Company Number: US-AMAG PHARMACEUTICALS, INC.-AMAG201805406

PATIENT

DRUGS (2)
  1. FERAHEME [Suspect]
     Active Substance: FERUMOXYTOL NON-STOICHIOMETRIC MAGNETITE
     Indication: IRON DEFICIENCY ANAEMIA
     Dosage: UNK
     Route: 042
     Dates: start: 201807
  2. FERAHEME [Suspect]
     Active Substance: FERUMOXYTOL NON-STOICHIOMETRIC MAGNETITE
     Dosage: UNK
     Route: 042
     Dates: start: 201807

REACTIONS (8)
  - Hyperhidrosis [Unknown]
  - Pruritus [Unknown]
  - Bronchospasm [Unknown]
  - Muscle spasms [Unknown]
  - Dyspnoea [Unknown]
  - Chest pain [Unknown]
  - Back pain [Unknown]
  - Rash [Unknown]

NARRATIVE: CASE EVENT DATE: 201807
